FAERS Safety Report 8542680-5 (Version None)
Quarter: 2012Q3

REPORT INFORMATION
  Report Type: 
  Country: None (occurrence: None)
  Receive Date: 20120727
  Receipt Date: 20120712
  Transmission Date: 20120928
  Serious: Yes (Disabling)
  Sender: FDA-Public Use
  Company Number: US-009507513-1205USA02259

PATIENT

DRUGS (15)
  1. ZOCOR [Suspect]
     Dosage: 10 MG, QD
     Route: 048
     Dates: start: 20110919, end: 20111017
  2. ZOCOR [Suspect]
     Dosage: 10 MG, QOD
     Route: 048
  3. ZOCOR [Suspect]
     Dosage: 1/2 TABLET, QD
     Route: 048
  4. NOW COQ10 [Concomitant]
     Dosage: UNK UNK, QD
     Route: 048
  5. ERGOCALCIFEROL [Concomitant]
     Dosage: 10 MG, QD
  6. ZOCOR [Suspect]
     Indication: BLOOD CHOLESTEROL INCREASED
     Dosage: 1/2 TABLET QOD
     Route: 048
     Dates: start: 20110718
  7. DEXILANT [Concomitant]
     Indication: GASTROOESOPHAGEAL REFLUX DISEASE
     Dosage: 60 MG, QD
     Route: 047
     Dates: start: 20110916
  8. FIBERCON [Concomitant]
     Dosage: TABS 2, QD
  9. ZYRTEC [Concomitant]
     Indication: HYPERSENSITIVITY
     Dosage: 10 MG, QD
     Route: 048
     Dates: start: 20020101
  10. BISOPROLOL FUMARATE [Concomitant]
     Indication: LABILE HYPERTENSION
     Dates: start: 20111201
  11. SYNTHROID [Concomitant]
     Indication: HYPOTHYROIDISM
     Dosage: 75 ?G, QD
     Route: 048
     Dates: start: 20040101
  12. CLIMARA [Concomitant]
     Indication: HORMONE REPLACEMENT THERAPY
     Dosage: PATCH, 0,075
     Route: 061
     Dates: start: 19970101
  13. ATENOLOL [Concomitant]
     Indication: LABILE HYPERTENSION
     Dosage: 25 MG, QD
     Route: 048
     Dates: start: 20100101, end: 20111201
  14. VITAMIN B COMPLEX CAP [Concomitant]
     Dosage: UNK UNK, QD
  15. ASPIRIN [Concomitant]

REACTIONS (13)
  - IMPAIRED WORK ABILITY [None]
  - LETHARGY [None]
  - WRONG TECHNIQUE IN DRUG USAGE PROCESS [None]
  - DYSKINESIA [None]
  - MUSCLE SPASMS [None]
  - FEELING ABNORMAL [None]
  - PAIN IN EXTREMITY [None]
  - SLEEP DISORDER [None]
  - BURNOUT SYNDROME [None]
  - FATIGUE [None]
  - DISTURBANCE IN ATTENTION [None]
  - COGNITIVE DISORDER [None]
  - MENTAL IMPAIRMENT [None]
